FAERS Safety Report 4413044-0 (Version None)
Quarter: 2004Q3

REPORT INFORMATION
  Report Type: 
  Country: None (occurrence: None)
  Receive Date: 20040730
  Receipt Date: 20040730
  Transmission Date: 20050211
  Serious: Yes (Hospitalization)
  Sender: FDA-Public Use
  Company Number: None

PATIENT
  Sex: Male
  Weight: 66.6788 kg

DRUGS (5)
  1. FOSINOPRIL SODIUM [Suspect]
     Indication: HYPERTENSION
     Dosage: 40 MG DAILY
  2. HYDROCHLOROTHIAZIDE [Concomitant]
     Indication: HYPERTENSION
     Dosage: 25 MG DAILY
  3. FELODIPINE [Concomitant]
  4. SIMVASTATIN [Concomitant]
  5. SODIUM CHLORIDE INJ [Concomitant]

REACTIONS (2)
  - DIZZINESS [None]
  - RENAL FAILURE ACUTE [None]
